FAERS Safety Report 20561150 (Version 1)
Quarter: 2022Q1

REPORT INFORMATION
  Report Type: Spontaneous
  Country: ES (occurrence: ES)
  Receive Date: 20220307
  Receipt Date: 20220307
  Transmission Date: 20220423
  Serious: Yes (Hospitalization)
  Sender: FDA-Public Use
  Company Number: None

PATIENT
  Age: 75 Year
  Sex: Female

DRUGS (2)
  1. ABEMACICLIB [Suspect]
     Active Substance: ABEMACICLIB
     Indication: Breast cancer
     Dosage: 150 MG, BID
     Route: 048
     Dates: start: 20211223, end: 20211231
  2. FASLODEX [Concomitant]
     Active Substance: FULVESTRANT
     Indication: Breast cancer
     Dosage: UNK UNK, UNKNOWN
     Route: 042
     Dates: start: 20210901

REACTIONS (2)
  - Gastroenteritis [Recovered/Resolved]
  - Escherichia bacteraemia [Recovered/Resolved]

NARRATIVE: CASE EVENT DATE: 20211223
